FAERS Safety Report 6308061-X (Version None)
Quarter: 2009Q3

REPORT INFORMATION
  Report Type: 
  Country: None (occurrence: None)
  Receive Date: 20090813
  Receipt Date: 20090806
  Transmission Date: 20100115
  Serious: Yes (Other)
  Sender: FDA-Public Use
  Company Number: B0585369A

PATIENT
  Sex: Male
  Weight: 79 kg

DRUGS (3)
  1. ARIXTRA [Suspect]
     Indication: THROMBOSIS PROPHYLAXIS
     Dosage: 2.5MG PER DAY
     Route: 058
     Dates: start: 20090712, end: 20090715
  2. IXPRIM [Concomitant]
     Dosage: 37.5MG FOUR TIMES PER DAY
     Route: 048
     Dates: start: 20090712, end: 20090715
  3. BIPROFENID [Concomitant]
     Indication: DRUG USE FOR UNKNOWN INDICATION
     Route: 065

REACTIONS (9)
  - FATIGUE [None]
  - HOT FLUSH [None]
  - MALAISE [None]
  - MYALGIA [None]
  - NAUSEA [None]
  - OFF LABEL USE [None]
  - PARAESTHESIA [None]
  - PARALYSIS [None]
  - VERTIGO [None]
